FAERS Safety Report 8385883-5 (Version None)
Quarter: 2012Q2

REPORT INFORMATION
  Report Type: 
  Country: None (occurrence: None)
  Receive Date: 20120525
  Receipt Date: 20120515
  Transmission Date: 20120825
  Serious: Yes (Other)
  Sender: FDA-Public Use
  Company Number: IT-US-EMD SERONO, INC.-7107885

PATIENT
  Sex: Female

DRUGS (2)
  1. REBIF [Suspect]
     Indication: RELAPSING-REMITTING MULTIPLE SCLEROSIS
     Route: 058
     Dates: start: 20111205, end: 20111212
  2. REBIF [Suspect]

REACTIONS (2)
  - ABORTION SPONTANEOUS [None]
  - FOETAL EXPOSURE DURING PREGNANCY [None]
